FAERS Safety Report 5520161-0 (Version None)
Quarter: 2007Q4

REPORT INFORMATION
  Report Type: 
  Country: None (occurrence: None)
  Receive Date: 20071116
  Receipt Date: 20071023
  Transmission Date: 20080405
  Serious: No
  Sender: FDA-Public Use
  Company Number: US-BOEHRINGER INGELHEIM PHARMACEUTICALS, INC.-2007-BP-21207BP

PATIENT
  Sex: Female
  Weight: 141 kg

DRUGS (4)
  1. CLONIDINE HCL [Suspect]
     Indication: HYPERTENSION
     Route: 048
     Dates: start: 20061228
  2. CLONIDINE HCL [Suspect]
     Route: 048
     Dates: start: 20061201
  3. CELEBREX [Concomitant]
     Route: 048
  4. FLEXERIL [Concomitant]
     Route: 048

REACTIONS (2)
  - HYPERTENSION [None]
  - SOMNOLENCE [None]
